FAERS Safety Report 23796321 (Version 4)
Quarter: 2024Q3

REPORT INFORMATION
  Report Type: Report from Study
  Country: US (occurrence: US)
  Receive Date: 20240430
  Receipt Date: 20240703
  Transmission Date: 20241016
  Serious: Yes (Other)
  Sender: ABBVIE
  Company Number: US-ABBVIE-5736009

PATIENT
  Age: 65 Year
  Sex: Male

DRUGS (2)
  1. RINVOQ [Suspect]
     Active Substance: UPADACITINIB
     Indication: Crohn^s disease
     Route: 048
     Dates: start: 20231105
  2. RINVOQ [Suspect]
     Active Substance: UPADACITINIB
     Indication: Crohn^s disease
     Route: 048
     Dates: start: 20231101, end: 202311

REACTIONS (16)
  - Loss of consciousness [Recovering/Resolving]
  - Fall [Recovering/Resolving]
  - Herpes zoster [Recovering/Resolving]
  - Intentional product misuse [Not Recovered/Not Resolved]
  - Dizziness [Recovered/Resolved]
  - Blood pressure fluctuation [Recovering/Resolving]
  - Vertigo positional [Recovering/Resolving]
  - Blood cholesterol increased [Recovering/Resolving]
  - Fatigue [Recovered/Resolved]
  - Vertigo [Recovered/Resolved]
  - Weight increased [Recovering/Resolving]
  - Staphylococcal infection [Unknown]
  - Skin disorder [Unknown]
  - Head injury [Recovering/Resolving]
  - Hypertension [Not Recovered/Not Resolved]
  - Weight fluctuation [Recovering/Resolving]

NARRATIVE: CASE EVENT DATE: 20231201
